FAERS Safety Report 8245823-6 (Version None)
Quarter: 2012Q1

REPORT INFORMATION
  Report Type: 
  Country: None (occurrence: None)
  Receive Date: 20120330
  Receipt Date: 20120323
  Transmission Date: 20120608
  Serious: No
  Sender: FDA-Public Use
  Company Number: US-BIOGENIDEC-2012BI010504

PATIENT
  Sex: Female

DRUGS (1)
  1. AVONEX [Suspect]
     Indication: MULTIPLE SCLEROSIS
     Route: 030
     Dates: start: 20080627

REACTIONS (7)
  - PAIN IN EXTREMITY [None]
  - CONFUSIONAL STATE [None]
  - JOINT INJURY [None]
  - HALLUCINATION [None]
  - VARICOPHLEBITIS [None]
  - PYREXIA [None]
  - MUSCULOSKELETAL STIFFNESS [None]
